FAERS Safety Report 13611425 (Version 1)
Quarter: 2017Q2

REPORT INFORMATION
  Report Type: Spontaneous
  Country: US (occurrence: US)
  Receive Date: 20170605
  Receipt Date: 20170605
  Transmission Date: 20170830
  Serious: No
  Sender: FDA-Public Use
  Company Number: US-009507513-1705USA013071

PATIENT
  Age: 25 Year
  Sex: Female
  Weight: 77.1 kg

DRUGS (1)
  1. NEXPLANON [Suspect]
     Active Substance: ETONOGESTREL
     Indication: CONTRACEPTION
     Dosage: FREQUENCY: 3 YEARS
     Route: 059
     Dates: start: 20161231

REACTIONS (11)
  - Sinus congestion [Not Recovered/Not Resolved]
  - Nervousness [Unknown]
  - Hypoaesthesia [Unknown]
  - Dysphagia [Unknown]
  - Chest discomfort [Unknown]
  - Anxiety [Unknown]
  - Influenza like illness [Not Recovered/Not Resolved]
  - Menstrual disorder [Unknown]
  - Dyspnoea [Unknown]
  - Hypertension [Unknown]
  - Chest pain [Unknown]

NARRATIVE: CASE EVENT DATE: 20161231
